FAERS Safety Report 24229928 (Version 1)
Quarter: 2024Q3

REPORT INFORMATION
  Report Type: Spontaneous
  Country: US (occurrence: None)
  Receive Date: 20240820
  Receipt Date: 20240820
  Transmission Date: 20241016
  Serious: Yes (Death)
  Sender: Public
  Company Number: None

PATIENT
  Age: 64 Year
  Sex: Female

DRUGS (12)
  1. OCTREOTIDE [Suspect]
     Active Substance: OCTREOTIDE\OCTREOTIDE ACETATE
     Indication: Diverticular perforation
     Dosage: OTHER QUANTITY : 1ML (100 MCG) ;?OTHER FREQUENCY : EVERY 3 HOURS, INJECT 8 TIMES A DAY;?
     Route: 058
     Dates: start: 20240119
  2. OCTREOTIDE [Suspect]
     Active Substance: OCTREOTIDE\OCTREOTIDE ACETATE
     Indication: Abscess
  3. OCTREOTIDE [Suspect]
     Active Substance: OCTREOTIDE\OCTREOTIDE ACETATE
     Indication: Haemorrhage
  4. ALBUTEROL AER HFA [Concomitant]
  5. VIT B-12 [Concomitant]
  6. BREO ELLIPTA [Concomitant]
  7. CALCIUM\CHOLECALCIFEROL [Concomitant]
     Active Substance: CALCIUM\CHOLECALCIFEROL
  8. CEQUA [Concomitant]
     Active Substance: CYCLOSPORINE
  9. CITALOPRAM [Concomitant]
  10. CLONAZEPAM [Concomitant]
  11. DIHYDROERGOT SPR [Concomitant]
  12. FLAX SEED [Concomitant]
     Active Substance: FLAX SEED

REACTIONS (1)
  - Death [None]

NARRATIVE: CASE EVENT DATE: 20240819
